FAERS Safety Report 23817228 (Version 1)
Quarter: 2024Q2

REPORT INFORMATION
  Report Type: Report from Study
  Country: IT (occurrence: IT)
  Receive Date: 20240505
  Receipt Date: 20240505
  Transmission Date: 20240716
  Serious: Yes (Death, Other)
  Sender: FDA-Public Use
  Company Number: IT-SA-SAC20240326000674

PATIENT
  Age: 70 Year
  Sex: Female

DRUGS (1)
  1. AGALSIDASE BETA [Suspect]
     Active Substance: AGALSIDASE BETA
     Indication: Fabry^s disease
     Dosage: 2 DF (2 VIALS), QOW
     Route: 041
     Dates: start: 20161006, end: 20240307

REACTIONS (4)
  - Renal failure [Fatal]
  - Fluid retention [Fatal]
  - Hyperglycaemia [Fatal]
  - Malaise [Fatal]

NARRATIVE: CASE EVENT DATE: 20240321
